FAERS Safety Report 6362786-9 (Version None)
Quarter: 2009Q3

REPORT INFORMATION
  Report Type: 
  Country: None (occurrence: None)
  Receive Date: 20090919
  Receipt Date: 20090609
  Transmission Date: 20100115
  Serious: No
  Sender: FDA-Public Use
  Company Number: US-ABBOTT-09P-163-0578672-00

PATIENT
  Sex: Female
  Weight: 59.474 kg

DRUGS (6)
  1. HUMIRA [Suspect]
     Indication: RHEUMATOID ARTHRITIS
     Route: 058
     Dates: start: 20070101, end: 20081201
  2. METHOTREXATE [Concomitant]
     Indication: RHEUMATOID ARTHRITIS
  3. LEVOTHYROXINE SODIUM [Concomitant]
     Indication: THYROIDECTOMY
  4. CALCIUM WITH VITAMIN D [Concomitant]
     Indication: BONE DISORDER
  5. CALCIUM WITH VITAMIN D [Concomitant]
     Indication: ARTHROPATHY
  6. FOLIC ACID [Concomitant]
     Indication: RHEUMATOID ARTHRITIS

REACTIONS (3)
  - JOINT SWELLING [None]
  - NASAL ULCER [None]
  - UPPER RESPIRATORY TRACT INFECTION [None]
